FAERS Safety Report 8802013 (Version 1)
Quarter: 2012Q4

REPORT INFORMATION
  Report Type: 
  Country: GB (occurrence: GB)
  Receive Date: 20120921
  Receipt Date: 20120921
  Transmission Date: 20130627
  Serious: Yes (Other)
  Sender: FDA-Public Use
  Company Number: GB-PFIZER INC-2012229070

PATIENT
  Age: 79 Year
  Sex: Female

DRUGS (1)
  1. DETRUSITOL [Suspect]
     Dosage: 1 mg, 2x/day

REACTIONS (2)
  - Colour blindness acquired [Unknown]
  - Vision blurred [Unknown]
